FAERS Safety Report 10291498 (Version 2)
Quarter: 2014Q3

REPORT INFORMATION
  Report Type: Report from Study
  Country: US (occurrence: US)
  Receive Date: 20140710
  Receipt Date: 20140715
  Transmission Date: 20150326
  Serious: Yes (Hospitalization)
  Sender: FDA-Public Use
  Company Number: US-ACTELION-A-NJ2014-101570

PATIENT
  Age: 42 Year
  Sex: Female

DRUGS (2)
  1. MACITENTAN [Suspect]
     Active Substance: MACITENTAN
     Indication: COR PULMONALE CHRONIC
     Dosage: 10 MG, QD
     Route: 048
     Dates: start: 201404
  2. LETAIRIS [Concomitant]
     Active Substance: AMBRISENTAN

REACTIONS (3)
  - Lung infection [Unknown]
  - Cystic fibrosis [Unknown]
  - Condition aggravated [Unknown]
